FAERS Safety Report 24135170 (Version 1)
Quarter: 2024Q3

REPORT INFORMATION
  Report Type: Report from Study
  Country: US (occurrence: US)
  Receive Date: 20240725
  Receipt Date: 20240725
  Transmission Date: 20241016
  Serious: Yes (Death, Hospitalization)
  Sender: ABBVIE
  Company Number: US-ABBVIE-5657567

PATIENT
  Sex: Male

DRUGS (1)
  1. VENCLEXTA [Suspect]
     Active Substance: VENETOCLAX
     Indication: Chronic myeloid leukaemia
     Dosage: TAKE 1 TABLET BY MOUTH DAILY WITH BREAKFAST
     Route: 048

REACTIONS (3)
  - Disease progression [Fatal]
  - White blood cell count increased [Unknown]
  - Off label use [Unknown]
